FAERS Safety Report 8579908-1 (Version None)
Quarter: 2012Q3

REPORT INFORMATION
  Report Type: 
  Country: None (occurrence: None)
  Receive Date: 20120808
  Receipt Date: 20120801
  Transmission Date: 20120928
  Serious: Yes (Life-Threatening, Hospitalization)
  Sender: FDA-Public Use
  Company Number: FR-BRISTOL-MYERS SQUIBB COMPANY-16832438

PATIENT
  Age: 74 Year
  Sex: Male

DRUGS (6)
  1. COTRIATEC [Suspect]
     Indication: HYPERTENSION
     Route: 048
     Dates: end: 20120621
  2. SITAGLIPTIN PHOSPHATE/METFORMIN HYDROCHLORIDE [Suspect]
     Indication: TYPE 2 DIABETES MELLITUS
     Route: 048
     Dates: end: 20120621
  3. SIMVASTATIN [Concomitant]
  4. IRBESARTAN [Suspect]
     Indication: HYPERTENSION
     Route: 048
     Dates: end: 20120621
  5. IMOVANE [Concomitant]
  6. METFORMIN HCL [Suspect]

REACTIONS (3)
  - CARDIO-RESPIRATORY ARREST [None]
  - RENAL FAILURE ACUTE [None]
  - LACTIC ACIDOSIS [None]
